FAERS Safety Report 21880552 (Version 1)
Quarter: 2023Q1

REPORT INFORMATION
  Report Type: Report from Study
  Country: US (occurrence: US)
  Receive Date: 20230118
  Receipt Date: 20230118
  Transmission Date: 20230418
  Serious: Yes (Other)
  Sender: FDA-Public Use
  Company Number: US-MYLANLABS-202200322804

PATIENT
  Sex: Female

DRUGS (4)
  1. LYRICA [Suspect]
     Active Substance: PREGABALIN
     Indication: Back pain
     Dosage: 75 MILLIGRAM, BID
     Route: 065
  2. LYRICA [Suspect]
     Active Substance: PREGABALIN
     Indication: Lumbar spinal stenosis
     Dosage: 75 MILLIGRAM, TID
     Route: 065
  3. LYRICA [Suspect]
     Active Substance: PREGABALIN
     Indication: Back pain
  4. TRAMADOL [Concomitant]
     Active Substance: TRAMADOL
     Indication: Back pain
     Dosage: 50 MG, AS NEEDED (QID (FOUR TIMES A DAY) PRN (AS NEEDED))
     Route: 065

REACTIONS (4)
  - Gait inability [Unknown]
  - Abdominal pain upper [Unknown]
  - Pain [Unknown]
  - Product use issue [Unknown]
